FAERS Safety Report 13093094 (Version 1)
Quarter: 2017Q1

REPORT INFORMATION
  Report Type: Spontaneous
  Country: PT (occurrence: PT)
  Receive Date: 20170106
  Receipt Date: 20170106
  Transmission Date: 20170428
  Serious: Yes (Other)
  Sender: FDA-Public Use
  Company Number: PT-FRESENIUS KABI-FK201700154

PATIENT
  Sex: Female

DRUGS (1)
  1. FOLIC ACID (MANUFACTURER UNKNOWN) (FOLIC ACID) (FOLIC ACID) [Suspect]
     Active Substance: FOLIC ACID
     Indication: DRUG THERAPY
     Route: 065

REACTIONS (2)
  - Neutropenia [Unknown]
  - Bone marrow toxicity [Unknown]
